FAERS Safety Report 4955127-2 (Version None)
Quarter: 2006Q1

REPORT INFORMATION
  Report Type: 
  Country: None (occurrence: None)
  Receive Date: 20060322
  Receipt Date: 20060307
  Transmission Date: 20060701
  Serious: Yes (Other)
  Sender: FDA-Public Use
  Company Number: US200603002971

PATIENT
  Age: 53 Year
  Sex: Male
  Weight: 92.1 kg

DRUGS (7)
  1. ZYPREXA [Suspect]
     Dosage: 20 MG, EACH EVENING
     Dates: start: 19970318, end: 20050709
  2. INDERAL [Concomitant]
  3. PROZAC [Concomitant]
  4. COGENTIN [Concomitant]
  5. PROLIXIN [Concomitant]
  6. ATENOLOL [Concomitant]
  7. AMBIEN [Concomitant]

REACTIONS (3)
  - DIABETES MELLITUS NON-INSULIN-DEPENDENT [None]
  - HYPERLIPIDAEMIA [None]
  - NON-HODGKIN'S LYMPHOMA [None]
